FAERS Safety Report 16330008 (Version 1)
Quarter: 2019Q2

REPORT INFORMATION
  Report Type: Report from Study
  Country: None (occurrence: BE)
  Receive Date: 20190520
  Receipt Date: 20190520
  Transmission Date: 20190711
  Serious: Yes (Hospitalization)
  Sender: FDA-Public Use
  Company Number: BE-ABBVIE-19S-013-2787240-00

PATIENT
  Sex: Male

DRUGS (13)
  1. SIPRALEXA [Concomitant]
     Active Substance: ESCITALOPRAM OXALATE
     Indication: PRODUCT USED FOR UNKNOWN INDICATION
  2. REQUIP [Concomitant]
     Active Substance: ROPINIROLE HYDROCHLORIDE
  3. REQUIP [Concomitant]
     Active Substance: ROPINIROLE HYDROCHLORIDE
     Indication: PRODUCT USED FOR UNKNOWN INDICATION
  4. SIPRALEXA [Concomitant]
     Active Substance: ESCITALOPRAM OXALATE
  5. PROLOPA DISP [Concomitant]
     Indication: PRODUCT USED FOR UNKNOWN INDICATION
     Dosage: AS RESCUE MEDICATION
  6. AZILECT [Concomitant]
     Active Substance: RASAGILINE MESYLATE
  7. DUODOPA [Suspect]
     Active Substance: CARBIDOPA\LEVODOPA
     Dosage: MD=2ML??CD=4.3ML/HR DURING 16HRS ??ED=2ML??ND=2.2ML/HR DURING 8HRS
     Route: 050
     Dates: start: 20110118, end: 20110126
  8. DUODOPA [Suspect]
     Active Substance: CARBIDOPA\LEVODOPA
     Dosage: DOSES CONTINUOUSLY MONITORED AND ADAPTED
     Route: 050
     Dates: start: 20110126, end: 20160210
  9. DUODOPA [Suspect]
     Active Substance: CARBIDOPA\LEVODOPA
     Dosage: MD=2ML?CD=BETWEEN 5.1 AND 7ML/HR DURING 16HRS ?ED=BETWEEN 2.1 AND 4ML
     Route: 050
     Dates: start: 20160210
  10. MIRTAZAPINE. [Concomitant]
     Active Substance: MIRTAZAPINE
     Indication: PRODUCT USED FOR UNKNOWN INDICATION
  11. DUODOPA [Suspect]
     Active Substance: CARBIDOPA\LEVODOPA
     Indication: PARKINSON^S DISEASE
     Dosage: UNKNOWN
     Route: 050
     Dates: start: 20110117, end: 20110118
  12. PROLOPA HBS [Concomitant]
     Active Substance: BENSERAZIDE\LEVODOPA
     Indication: PRODUCT USED FOR UNKNOWN INDICATION
     Dosage: AS RESCUE MEDICATION
  13. AZILECT [Concomitant]
     Active Substance: RASAGILINE MESYLATE
     Indication: PARKINSON^S DISEASE
     Route: 048

REACTIONS (1)
  - Inguinal hernia [Unknown]
